FAERS Safety Report 6579834-3 (Version None)
Quarter: 2010Q1

REPORT INFORMATION
  Report Type: 
  Country: None (occurrence: None)
  Receive Date: 20100212
  Receipt Date: 20100202
  Transmission Date: 20100710
  Serious: Yes (Hospitalization)
  Sender: FDA-Public Use
  Company Number: US-ABBOTT-10P-163-0623681-00

PATIENT
  Age: 76 Year
  Sex: Female

DRUGS (9)
  1. SYNTHROID [Suspect]
     Indication: DRUG USE FOR UNKNOWN INDICATION
  2. PROTONIX [Suspect]
     Indication: DRUG USE FOR UNKNOWN INDICATION
  3. DASATINIB [Suspect]
     Indication: BREAST CANCER METASTATIC
     Dates: start: 20091030, end: 20091216
  4. DASATINIB [Suspect]
     Dates: start: 20091216, end: 20100105
  5. XANAX [Suspect]
     Indication: DRUG USE FOR UNKNOWN INDICATION
  6. EFFEXOR [Suspect]
     Indication: DRUG USE FOR UNKNOWN INDICATION
  7. MIRALAX [Suspect]
     Indication: DRUG USE FOR UNKNOWN INDICATION
  8. AMBIEN [Suspect]
     Indication: DRUG USE FOR UNKNOWN INDICATION
  9. OXYCODONE HCL [Suspect]
     Indication: DRUG USE FOR UNKNOWN INDICATION

REACTIONS (23)
  - ABDOMINAL PAIN [None]
  - ANAEMIA [None]
  - ANXIETY [None]
  - ASTHENIA [None]
  - BONE SCAN ABNORMAL [None]
  - CONFUSIONAL STATE [None]
  - CONSTIPATION [None]
  - FATIGUE [None]
  - FEELING JITTERY [None]
  - GAIT DISTURBANCE [None]
  - HEADACHE [None]
  - HYPERCALCAEMIA [None]
  - HYPERTENSION [None]
  - LIVER FUNCTION TEST ABNORMAL [None]
  - MUSCULAR WEAKNESS [None]
  - MUSCULOSKELETAL CHEST PAIN [None]
  - MUSCULOSKELETAL PAIN [None]
  - NERVOUSNESS [None]
  - OEDEMA PERIPHERAL [None]
  - PAIN [None]
  - PLEURAL EFFUSION [None]
  - URINARY INCONTINENCE [None]
  - URINARY TRACT INFECTION [None]
